FAERS Safety Report 5042673-9 (Version None)
Quarter: 2006Q3

REPORT INFORMATION
  Report Type: 
  Country: None (occurrence: None)
  Receive Date: 20060705
  Receipt Date: 20060628
  Transmission Date: 20061208
  Serious: Yes (Hospitalization)
  Sender: FDA-Public Use
  Company Number: 2006CG01122

PATIENT
  Age: 62 Year
  Sex: Male

DRUGS (3)
  1. NEXIUM [Suspect]
     Indication: OESOPHAGITIS
     Route: 048
     Dates: start: 20050515, end: 20060501
  2. NEXIUM [Suspect]
     Indication: GASTROOESOPHAGEAL REFLUX DISEASE
     Route: 048
     Dates: start: 20050515, end: 20060501
  3. IVERMECTINE [Concomitant]
     Dates: start: 20060201

REACTIONS (2)
  - EOSINOPHILIA [None]
  - PERICARDIAL EFFUSION [None]
